FAERS Safety Report 10684151 (Version 1)
Quarter: 2014Q4

REPORT INFORMATION
  Report Type: Spontaneous
  Country: DE (occurrence: DE)
  Receive Date: 20141231
  Receipt Date: 20141231
  Transmission Date: 20150529
  Serious: Yes (Other)
  Sender: FDA-Public Use
  Company Number: ALCN2014DE007213

PATIENT
  Sex: Male

DRUGS (1)
  1. VITALUX PLUS [Suspect]
     Active Substance: VITAMINS
     Dosage: UNK
     Route: 047

REACTIONS (3)
  - Chorioretinal disorder [Unknown]
  - Intraocular pressure increased [Unknown]
  - Blindness unilateral [Not Recovered/Not Resolved]
